FAERS Safety Report 8734194 (Version 3)
Quarter: 2013Q1

REPORT INFORMATION
  Report Type: Spontaneous
  Country: US (occurrence: US)
  Receive Date: 20120821
  Receipt Date: 20130209
  Transmission Date: 20140127
  Serious: Yes (Hospitalization)
  Sender: FDA-Public Use
  Company Number: US-B.I. PHARMACEUTICALS,INC./RIDGEFIELD-2012-BP-19158BP

PATIENT
  Age: 85 Year
  Sex: Female
  Weight: 83.01 kg

DRUGS (9)
  1. PRADAXA [Suspect]
     Indication: ATRIAL FIBRILLATION
     Dosage: 300 MG
     Route: 048
     Dates: start: 20110601, end: 20110825
  2. CARVEDILOL [Concomitant]
     Indication: HEART RATE ABNORMAL
  3. ALEVE [Concomitant]
     Indication: ARTHRALGIA
  4. SYNTHROID [Concomitant]
     Dates: start: 1994
  5. ALLEGRA [Concomitant]
     Dates: start: 2008
  6. WARFARIN [Concomitant]
  7. GLYBURIDE [Concomitant]
  8. FUROSEMIDE [Concomitant]
  9. POTASSIUM CHLORIDE [Concomitant]

REACTIONS (3)
  - Gastrointestinal haemorrhage [Unknown]
  - Anaemia [Not Recovered/Not Resolved]
  - Gastritis [Unknown]
